FAERS Safety Report 7890687-3 (Version None)
Quarter: 2011Q4

REPORT INFORMATION
  Report Type: 
  Country: None (occurrence: None)
  Receive Date: 20111103
  Receipt Date: 20110721
  Transmission Date: 20120403
  Serious: No
  Sender: FDA-Public Use
  Company Number: US-AMGEN-USASP2011037717

PATIENT
  Age: 42 Year
  Sex: Female

DRUGS (2)
  1. ENBREL [Suspect]
     Indication: RHEUMATOID ARTHRITIS
     Dosage: 50 MG, QWK
     Dates: start: 20110223
  2. METHOTREXATE [Concomitant]

REACTIONS (8)
  - PAIN [None]
  - MUSCULOSKELETAL DISCOMFORT [None]
  - MALAISE [None]
  - TENDONITIS [None]
  - DRUG INEFFECTIVE [None]
  - SLEEP DISORDER DUE TO GENERAL MEDICAL CONDITION, INSOMNIA TYPE [None]
  - ARTHRALGIA [None]
  - NAUSEA [None]
